FAERS Safety Report 8277079-2 (Version None)
Quarter: 2012Q2

REPORT INFORMATION
  Report Type: 
  Country: None (occurrence: None)
  Receive Date: 20120412
  Receipt Date: 20120410
  Transmission Date: 20120825
  Serious: Yes (Other)
  Sender: FDA-Public Use
  Company Number: PHEH2012US005459

PATIENT
  Sex: Male

DRUGS (1)
  1. GILENYA [Suspect]
     Indication: MULTIPLE SCLEROSIS
     Dosage: 0.5 MG, DAILY
     Route: 048
     Dates: start: 20110621

REACTIONS (5)
  - MALAISE [None]
  - COUGH [None]
  - HAEMOPTYSIS [None]
  - PULMONARY OEDEMA [None]
  - RESPIRATORY TRACT CONGESTION [None]
